FAERS Safety Report 17121397 (Version 2)
Quarter: 2020Q1

REPORT INFORMATION
  Report Type: Spontaneous
  Country: US (occurrence: US)
  Receive Date: 20191206
  Receipt Date: 20200318
  Transmission Date: 20200409
  Serious: No
  Sender: FDA-Public Use
  Company Number: US-APOTEX-2019AP023493

PATIENT
  Sex: Female

DRUGS (1)
  1. PAROXETINE. [Suspect]
     Active Substance: PAROXETINE
     Indication: PRODUCT USED FOR UNKNOWN INDICATION
     Dosage: UNK
     Route: 065

REACTIONS (7)
  - Drug intolerance [Unknown]
  - Anxiety [Unknown]
  - Blood pressure increased [Unknown]
  - Drug ineffective [Unknown]
  - Abdominal distension [Unknown]
  - Diarrhoea [Unknown]
  - Weight increased [Unknown]
